FAERS Safety Report 6925149-0 (Version None)
Quarter: 2010Q3

REPORT INFORMATION
  Report Type: 
  Country: None (occurrence: None)
  Receive Date: 20100810
  Receipt Date: 20100730
  Transmission Date: 20110219
  Serious: Yes (Other)
  Sender: FDA-Public Use
  Company Number: 2010SP041741

PATIENT
  Age: 83 Year
  Sex: Female

DRUGS (1)
  1. CELESTONE SOLUSPAN [Suspect]
     Indication: RADICULAR PAIN

REACTIONS (4)
  - NEUROGENIC BLADDER [None]
  - NEUROGENIC BOWEL [None]
  - PARAPLEGIA [None]
  - SPINAL CORD INFARCTION [None]
